FAERS Safety Report 16764859 (Version 1)
Quarter: 2019Q3

REPORT INFORMATION
  Report Type: Spontaneous
  Country: JP (occurrence: JP)
  Receive Date: 20190903
  Receipt Date: 20190903
  Transmission Date: 20191005
  Serious: Yes (Death, Other)
  Sender: FDA-Public Use
  Company Number: JP-ROCHE-2394565

PATIENT
  Age: 5 Year
  Sex: Male

DRUGS (2)
  1. DEXAMETHASONE. [Concomitant]
     Active Substance: DEXAMETHASONE
     Indication: BRAIN STEM GLIOMA
     Dosage: DOSAGE IS UNCERTAIN.
     Route: 065
  2. AVASTIN [Suspect]
     Active Substance: BEVACIZUMAB
     Indication: BRAIN STEM GLIOMA
     Route: 041

REACTIONS (3)
  - Brain stem glioma [Fatal]
  - Hyperkalaemia [Unknown]
  - Hyperglycaemia [Unknown]
